FAERS Safety Report 4309873-4 (Version None)
Quarter: 2004Q1

REPORT INFORMATION
  Report Type: 
  Country: None (occurrence: None)
  Receive Date: 20040303
  Receipt Date: 20040109
  Transmission Date: 20041129
  Serious: Yes (Hospitalization)
  Sender: FDA-Public Use
  Company Number: US-BRISTOL-MYERS SQUIBB COMPANY-12475497

PATIENT
  Age: 6 Year
  Sex: Male

DRUGS (3)
  1. ABILIFY [Suspect]
     Dosage: INITIAL DOSE: 5 MG/DAY
     Route: 048
  2. CONCERTA [Concomitant]
  3. SEROQUEL [Concomitant]

REACTIONS (1)
  - DYSTONIA [None]
